FAERS Safety Report 7633346-4 (Version None)
Quarter: 2011Q3

REPORT INFORMATION
  Report Type: 
  Country: None (occurrence: None)
  Receive Date: 20110725
  Receipt Date: 20100819
  Transmission Date: 20111222
  Serious: Yes (Other)
  Sender: FDA-Public Use
  Company Number: US-BRISTOL-MYERS SQUIBB COMPANY-15247471

PATIENT
  Age: 65 Year
  Sex: Male

DRUGS (6)
  1. SPRYCEL [Suspect]
     Indication: GASTROINTESTINAL CARCINOMA
     Route: 048
  2. FERROUS SULFATE TAB [Concomitant]
  3. VITAMIN TAB [Concomitant]
  4. ATENOLOL [Concomitant]
     Indication: BLOOD PRESSURE
  5. LACTOSE [Concomitant]
     Dosage: DOSAGE:IN AM
  6. BENICAR [Concomitant]
     Indication: BLOOD PRESSURE

REACTIONS (5)
  - FLATULENCE [None]
  - FLUSHING [None]
  - ERYTHEMA [None]
  - BLOOD PRESSURE INCREASED [None]
  - DYSPEPSIA [None]
